FAERS Safety Report 6252069-X (Version None)
Quarter: 2009Q2

REPORT INFORMATION
  Report Type: 
  Country: None (occurrence: None)
  Receive Date: 20090630
  Receipt Date: 20061013
  Transmission Date: 20091009
  Serious: Yes (Hospitalization)
  Sender: FDA-Public Use
  Company Number: US-ROCHE-638759

PATIENT
  Sex: Male

DRUGS (11)
  1. ENFUVIRTIDE [Suspect]
     Indication: HIV INFECTION
     Route: 065
     Dates: start: 20041202, end: 20080814
  2. COMBIVIR [Concomitant]
     Dosage: DOSE: 1 TABLET
     Dates: start: 20041101, end: 20051212
  3. NORVIR [Concomitant]
     Dates: start: 20041101, end: 20080814
  4. VIREAD [Concomitant]
     Dosage: FREQUENCY: DAILY (QD)
     Dates: start: 20041101, end: 20080814
  5. PREZISTA [Concomitant]
     Dates: start: 20050121, end: 20080814
  6. SEPTRA [Concomitant]
     Dosage: DOSE: 1 TABLET
     Dates: start: 20041101, end: 20080814
  7. AUGMENTIN [Concomitant]
     Dates: start: 20051130
  8. BACTRIM [Concomitant]
     Dosage: DOSE: 1 TABLET, FREQUENCY: DAILY
     Dates: start: 20060724
  9. KEFLEX [Concomitant]
     Dates: start: 20060920
  10. KEFLEX [Concomitant]
     Dates: end: 20060930
  11. ACYCLOVIR [Concomitant]
     Dates: start: 20061008, end: 20080814

REACTIONS (1)
  - THROMBOSIS [None]
